FAERS Safety Report 5087464-8 (Version None)
Quarter: 2006Q3

REPORT INFORMATION
  Report Type: 
  Country: None (occurrence: None)
  Receive Date: 20060727
  Receipt Date: 20060504
  Transmission Date: 20061208
  Serious: Yes (Other)
  Sender: FDA-Public Use
  Company Number: 2006060476

PATIENT
  Age: 73 Year
  Sex: Female
  Weight: 86.1834 kg

DRUGS (5)
  1. LYRICA [Suspect]
     Indication: MIGRAINE PROPHYLAXIS
     Dosage: 150 MG (50 MG, 3 IN 1 D), ORAL
     Route: 048
     Dates: start: 20060301
  2. PREVACID [Concomitant]
  3. COZAAR [Concomitant]
  4. ATIVAN [Concomitant]
  5. CARAFATE [Concomitant]

REACTIONS (7)
  - BODY HEIGHT DECREASED [None]
  - CONSTIPATION [None]
  - DRUG INEFFECTIVE [None]
  - MUSCLE SPASMS [None]
  - PAIN IN EXTREMITY [None]
  - PARAESTHESIA [None]
  - POLLAKIURIA [None]
